FAERS Safety Report 18575350 (Version 1)
Quarter: 2020Q4

REPORT INFORMATION
  Report Type: Spontaneous
  Country: PK (occurrence: PK)
  Receive Date: 20201203
  Receipt Date: 20201203
  Transmission Date: 20210114
  Serious: Yes (Other)
  Sender: FDA-Public Use
  Company Number: PK-PFIZER INC-2020470627

PATIENT
  Age: 69 Year
  Weight: 52 kg

DRUGS (8)
  1. FOLIC ACID. [Concomitant]
     Active Substance: FOLIC ACID
     Dosage: 1 DF, 1X/DAY (TAKE ONE TABLET IN MORNING CONTINUE)
  2. SYSTANE BALANCE [Concomitant]
     Active Substance: PROPYLENE GLYCOL
     Dosage: 2 DROP, 3X/DAY (TAKE 2 DROPS IN MORNING, 2 IN AFTERNOON, 2 IN EVENING, CONTINUE)
  3. H2F [Concomitant]
     Dosage: 1 DF, AS NEEDED  (BEFORE MEAL. TAKE ONE TABLET BEFORE BREAKFAST, AS PER NEED)
  4. METHOTREXATE SODIUM. [Suspect]
     Active Substance: METHOTREXATE SODIUM
     Dosage: UNK
  5. CITANEW [Concomitant]
     Active Substance: ESCITALOPRAM OXALATE
     Dosage: 0.5 MG, 1X/DAY  (AFTER MEAL. TAKE HALF TABLET AFTER BREAKFAST, CONTINUE)
  6. LEFORA [Concomitant]
     Dosage: 1 DF, 1X/DAY (TAKE ONE TABLET IN MORNING CONTINUE)
  7. CAC [Concomitant]
     Dosage: 1 DF, 1X/DAY (CONTINUE)
  8. ENBREL [Concomitant]
     Active Substance: ETANERCEPT
     Dosage: 50 MG, MONTHLY
     Route: 058
     Dates: start: 201805, end: 20200823

REACTIONS (11)
  - C-reactive protein increased [Unknown]
  - Depressed mood [Unknown]
  - Blood urine [Unknown]
  - Weight decreased [Unknown]
  - Urine ketone body present [Unknown]
  - Osteoporosis [Unknown]
  - Urine leukocyte esterase [Unknown]
  - Blood creatine decreased [Unknown]
  - Haemoglobin decreased [Unknown]
  - Furuncle [Unknown]
  - Arthralgia [Unknown]
